FAERS Safety Report 4431768-6 (Version None)
Quarter: 2004Q3

REPORT INFORMATION
  Report Type: 
  Country: None (occurrence: None)
  Receive Date: 20040818
  Receipt Date: 20040805
  Transmission Date: 20050211
  Serious: Yes (Disabling)
  Sender: FDA-Public Use
  Company Number: 2004-00446FE

PATIENT
  Age: 59 Year
  Sex: Male

DRUGS (2)
  1. PENTASA [Suspect]
     Indication: CROHN'S DISEASE
     Dosage: 1500 MG ORALLY
     Route: 048
     Dates: start: 20040101
  2. OMEPRAZOLE [Concomitant]

REACTIONS (2)
  - LESION OF ULNAR NERVE [None]
  - SENSORY LOSS [None]
